FAERS Safety Report 10708517 (Version 2)
Quarter: 2015Q1

REPORT INFORMATION
  Report Type: Report from Study
  Country: IT (occurrence: IT)
  Receive Date: 20150113
  Receipt Date: 20150131
  Transmission Date: 20150721
  Serious: Yes (Hospitalization)
  Sender: FDA-Public Use
  Company Number: IT-ROCHE-1414670

PATIENT
  Age: 69 Year
  Sex: Female
  Weight: 70 kg

DRUGS (2)
  1. BENDAMUSTINE [Suspect]
     Active Substance: BENDAMUSTINE
     Indication: CHRONIC LYMPHOCYTIC LEUKAEMIA
     Dosage: LAST DOSE PRIOR TO THE ONSET OF NEUTROPENIC FEVER: 08/MAY/2014 (162MG).?FREQUENCY: C1D1, C1D2, C1D15
     Route: 042
     Dates: start: 20140407
  2. OBINUTUZUMAB [Suspect]
     Active Substance: OBINUTUZUMAB
     Indication: CHRONIC LYMPHOCYTIC LEUKAEMIA
     Dosage: LAST DOSE PRIOR TO THE ONSET OF NEUTROPENIC FEVER: 07/MAY/2014?FREQUENCY: C1D1, C1D2, C1D8, C1D15, C
     Route: 042
     Dates: start: 20140407

REACTIONS (1)
  - Febrile neutropenia [Recovered/Resolved]

NARRATIVE: CASE EVENT DATE: 20140507
